FAERS Safety Report 8471384-2 (Version None)
Quarter: 2012Q2

REPORT INFORMATION
  Report Type: 
  Country: None (occurrence: None)
  Receive Date: 20120627
  Receipt Date: 20120620
  Transmission Date: 20120825
  Serious: Yes (Life-Threatening, Hospitalization, Other)
  Sender: FDA-Public Use
  Company Number: JP-PFIZER INC-2012105192

PATIENT
  Age: 83 Year
  Sex: Male

DRUGS (2)
  1. VALSARTAN [Suspect]
     Dosage: UNK
     Route: 048
  2. LYRICA [Suspect]
     Dosage: UNK
     Route: 048

REACTIONS (6)
  - ANGIOEDEMA [None]
  - PULMONARY OEDEMA [None]
  - BASEDOW'S DISEASE [None]
  - WEIGHT INCREASED [None]
  - THYROID FUNCTION TEST ABNORMAL [None]
  - CARDIAC FAILURE [None]
